FAERS Safety Report 21599061 (Version 1)
Quarter: 2022Q4

REPORT INFORMATION
  Report Type: Spontaneous
  Country: CA (occurrence: CA)
  Receive Date: 20221115
  Receipt Date: 20221115
  Transmission Date: 20230112
  Serious: Yes (Other)
  Sender: FDA-Public Use
  Company Number: CA-TEVA-2022-CA-2825151

PATIENT
  Age: 34 Year
  Sex: Female

DRUGS (2)
  1. METHOTREXATE [Suspect]
     Active Substance: METHOTREXATE
     Indication: Product used for unknown indication
     Route: 058
  2. PREDNISONE [Concomitant]
     Active Substance: PREDNISONE
     Indication: Product used for unknown indication
     Route: 065

REACTIONS (9)
  - Arrhythmia [Unknown]
  - Arthralgia [Unknown]
  - Dyspnoea [Unknown]
  - Hepatic mass [Unknown]
  - Loss of consciousness [Unknown]
  - Lung infiltration [Unknown]
  - Metabolic disorder [Unknown]
  - Nodule [Unknown]
  - Treatment failure [Unknown]
